FAERS Safety Report 10158492 (Version 1)
Quarter: 2014Q2

REPORT INFORMATION
  Report Type: Spontaneous
  Country: US (occurrence: US)
  Receive Date: 20140507
  Receipt Date: 20140507
  Transmission Date: 20141212
  Serious: No
  Sender: FDA-Public Use
  Company Number: US-AMGEN-USASP2013078374

PATIENT
  Sex: Male

DRUGS (3)
  1. ARANESP [Suspect]
     Indication: PRODUCT USED FOR UNKNOWN INDICATION
     Route: 065
  2. ARANESP [Suspect]
  3. INTERFERON                         /05982601/ [Concomitant]
     Route: 065

REACTIONS (2)
  - Injection site pain [Unknown]
  - Haemoglobin abnormal [Unknown]
